FAERS Safety Report 5019294-7 (Version None)
Quarter: 2006Q2

REPORT INFORMATION
  Report Type: 
  Country: None (occurrence: None)
  Receive Date: 20060531
  Receipt Date: 20060524
  Transmission Date: 20061013
  Serious: Yes (Hospitalization, Other)
  Sender: FDA-Public Use
  Company Number: 200612155GDS

PATIENT
  Age: 76 Year
  Sex: Male
  Weight: 58.9676 kg

DRUGS (10)
  1. SORAFENIB (UNCODEABLE ^INVESTIATIONAL DRUG^) [Suspect]
     Indication: HEPATIC NEOPLASM MALIGNANT
     Dosage: 800 MG, TOTAL DAILY, ORAL
     Route: 048
  2. ALTACE [Concomitant]
  3. APO-DILTIAZEM [Concomitant]
  4. APO-FUROSEMIDE [Concomitant]
  5. GLYBURIDE [Concomitant]
  6. APO-PRAVASTATIN [Concomitant]
  7. ADVAIR DISKUS 100/50 [Concomitant]
  8. SPIRIVA [Concomitant]
  9. ASPIRIN [Concomitant]
  10. HYDROXYZINE HCL [Concomitant]

REACTIONS (1)
  - HYPOGLYCAEMIA [None]
